FAERS Safety Report 4453313-1 (Version None)
Quarter: 2004Q3

REPORT INFORMATION
  Report Type: 
  Country: None (occurrence: None)
  Receive Date: 20040920
  Receipt Date: 20040907
  Transmission Date: 20050211
  Serious: Yes (Other)
  Sender: FDA-Public Use
  Company Number: US-MERCK-0409USA00444

PATIENT
  Age: 45 Year
  Sex: Male

DRUGS (3)
  1. DILANTIN [Concomitant]
     Route: 065
  2. VIOXX [Suspect]
     Indication: ARTHRALGIA
     Route: 048
     Dates: start: 20040902, end: 20040907
  3. VIOXX [Suspect]
     Indication: JOINT SPRAIN
     Route: 048
     Dates: start: 20040902, end: 20040907

REACTIONS (1)
  - CONVULSION [None]
